FAERS Safety Report 17341383 (Version 1)
Quarter: 2020Q1

REPORT INFORMATION
  Report Type: Spontaneous
  Country: US (occurrence: US)
  Receive Date: 20200129
  Receipt Date: 20200129
  Transmission Date: 20200409
  Serious: No
  Sender: FDA-Public Use
  Company Number: US-ALLERGAN-1916028US

PATIENT
  Age: 49 Year
  Sex: Female

DRUGS (5)
  1. JUVEDERM [Concomitant]
     Active Substance: HYALURONIC ACID
     Indication: SKIN WRINKLING
     Dosage: UNK, SINGLE
     Route: 030
     Dates: start: 2018, end: 2018
  2. JUVEDERM ULTRA [Concomitant]
     Active Substance: HYALURONIC ACID
     Indication: SKIN WRINKLING
     Dosage: UNK, SINGLE
     Route: 030
     Dates: start: 2018, end: 2018
  3. JUVEDERM PLUS [Concomitant]
     Indication: SKIN WRINKLING
     Dosage: UNK, SINGLE
     Route: 030
     Dates: start: 2018, end: 2018
  4. BOTOX COSMETIC [Suspect]
     Active Substance: ONABOTULINUMTOXINA
     Indication: SKIN WRINKLING
     Dosage: UNK, SINGLE
     Route: 030
     Dates: start: 2018, end: 2018
  5. JUVEDERM  VOLBELLA  XC [Concomitant]
     Indication: SKIN WRINKLING
     Dosage: UNK, SINGLE
     Route: 030
     Dates: start: 201807, end: 201807

REACTIONS (6)
  - Scab [Unknown]
  - Cheilitis [Recovering/Resolving]
  - Skin erosion [Unknown]
  - Bacterial infection [Unknown]
  - Chapped lips [Unknown]
  - Off label use [Unknown]

NARRATIVE: CASE EVENT DATE: 201807
